FAERS Safety Report 4476779-X (Version None)
Quarter: 2004Q4

REPORT INFORMATION
  Report Type: 
  Country: None (occurrence: None)
  Receive Date: 20041013
  Receipt Date: 20040928
  Transmission Date: 20050328
  Serious: Yes (Other)
  Sender: FDA-Public Use
  Company Number: 04-000681

PATIENT
  Age: 20 Year
  Sex: Female

DRUGS (1)
  1. ESTROSTEP 21 [Suspect]
     Dosage: ORAL
     Route: 048
     Dates: start: 20040101, end: 20040101

REACTIONS (2)
  - MEDICATION ERROR [None]
  - OVARIAN CYST [None]
